FAERS Safety Report 16303565 (Version 5)
Quarter: 2020Q4

REPORT INFORMATION
  Report Type: Report from Study
  Country: None (occurrence: JP)
  Receive Date: 20190513
  Receipt Date: 20201212
  Transmission Date: 20210113
  Serious: Yes (Death, Other)
  Sender: FDA-Public Use
  Company Number: JP-ABBVIE-19P-087-2728162-00

PATIENT
  Age: 69 Year
  Sex: Male

DRUGS (10)
  1. URIEF [Concomitant]
     Active Substance: SILODOSIN
     Indication: NOCTURIA
     Dosage: 8 MILLIGRAM
     Route: 065
     Dates: start: 20180712
  2. LEUPRORELIN [Suspect]
     Active Substance: LEUPROLIDE ACETATE
     Indication: BULBOSPINAL MUSCULAR ATROPHY CONGENITAL
     Dosage: 11.25 MILLIGRAM, Q3MONTHS
     Route: 058
     Dates: start: 20171116
  3. MUCOSAL-L [Concomitant]
     Indication: BULBOSPINAL MUSCULAR ATROPHY CONGENITAL
     Dosage: 45 MILLIGRAM
     Route: 065
     Dates: start: 20180510
  4. UBRETID [Concomitant]
     Active Substance: DISTIGMINE BROMIDE
     Indication: NOCTURIA
     Dosage: 5 MILLIGRAM
     Route: 065
     Dates: start: 20181101
  5. ARTIST [Concomitant]
     Active Substance: CARVEDILOL
     Indication: PRODUCT USED FOR UNKNOWN INDICATION
     Dosage: 10 MILLIGRAM
     Route: 065
  6. CYTOTEC [Concomitant]
     Active Substance: MISOPROSTOL
     Indication: BACK PAIN
     Dosage: 200 MICROGRAM
     Route: 065
     Dates: start: 20180712, end: 20180806
  7. NIFEDIPINE. [Concomitant]
     Active Substance: NIFEDIPINE
     Indication: PRODUCT USED FOR UNKNOWN INDICATION
     Dosage: 20 MILLIGRAM
     Route: 065
  8. CELECOX [Concomitant]
     Active Substance: CELECOXIB
     Indication: BACK PAIN
     Dosage: 200 MILLIGRAM
     Route: 065
     Dates: start: 20180712, end: 20180806
  9. CANDESARTAN. [Concomitant]
     Active Substance: CANDESARTAN
     Indication: PRODUCT USED FOR UNKNOWN INDICATION
     Dosage: 2 MILLIGRAM
     Route: 065
  10. EURODIN [Concomitant]
     Indication: INSOMNIA
     Dosage: 1 MILLIGRAM
     Route: 065

REACTIONS (3)
  - Asphyxia [Fatal]
  - Injection site induration [Recovering/Resolving]
  - Blood creatine phosphokinase increased [Recovered/Resolved]

NARRATIVE: CASE EVENT DATE: 20180614
